FAERS Safety Report 16768107 (Version 3)
Quarter: 2020Q3

REPORT INFORMATION
  Report Type: Spontaneous
  Country: US (occurrence: US)
  Receive Date: 20190903
  Receipt Date: 20200929
  Transmission Date: 20201102
  Serious: No
  Sender: FDA-Public Use
  Company Number: US-PFIZER INC-2019376883

PATIENT
  Age: 55 Year
  Sex: Female
  Weight: 86 kg

DRUGS (1)
  1. PREGABALIN. [Suspect]
     Active Substance: PREGABALIN
     Dosage: UNK
     Dates: start: 2019

REACTIONS (6)
  - Impatience [Unknown]
  - Illness [Unknown]
  - Urticaria [Unknown]
  - Vomiting [Unknown]
  - Drug hypersensitivity [Unknown]
  - Homicidal ideation [Unknown]
